FAERS Safety Report 9821948 (Version 2)
Quarter: 2014Q1

REPORT INFORMATION
  Report Type: Spontaneous
  Country: JP (occurrence: JP)
  Receive Date: 20140116
  Receipt Date: 20140217
  Transmission Date: 20141002
  Serious: Yes (Hospitalization)
  Sender: FDA-Public Use
  Company Number: PHHY2014JP004390

PATIENT
  Age: 64 Year
  Sex: Female

DRUGS (2)
  1. NEORAL [Suspect]
     Indication: APLASIA PURE RED CELL
  2. ANTITHYMOCYTE IMMUNOGLOBULIN [Suspect]

REACTIONS (4)
  - Interstitial lung disease [Unknown]
  - Dyspnoea [Unknown]
  - Pyrexia [Unknown]
  - Pneumonia cytomegaloviral [Unknown]
